FAERS Safety Report 13187344 (Version 1)
Quarter: 2017Q1

REPORT INFORMATION
  Report Type: Spontaneous
  Country: US (occurrence: US)
  Receive Date: 20170206
  Receipt Date: 20170206
  Transmission Date: 20170428
  Serious: No
  Sender: FDA-Public Use
  Company Number: US-TEVA-731035ACC

PATIENT
  Age: 68 Year
  Sex: Female

DRUGS (16)
  1. COQ10 [Concomitant]
     Active Substance: UBIDECARENONE
  2. GABAPENTIN. [Concomitant]
     Active Substance: GABAPENTIN
  3. VIVELLE-DOT [Concomitant]
     Active Substance: ESTRADIOL
  4. BACLOFEN. [Concomitant]
     Active Substance: BACLOFEN
  5. FISH OIL [Concomitant]
     Active Substance: FISH OIL
  6. PROLIA [Concomitant]
     Active Substance: DENOSUMAB
  7. VITAMIN B-6 [Concomitant]
     Active Substance: PYRIDOXINE
  8. BONIVA [Concomitant]
     Active Substance: IBANDRONATE SODIUM
  9. CALCIUM [Concomitant]
     Active Substance: CALCIUM
  10. LEVOTHYROXIN [Concomitant]
     Active Substance: LEVOTHYROXINE
  11. COPAXONE [Suspect]
     Active Substance: GLATIRAMER ACETATE
     Indication: MULTIPLE SCLEROSIS
     Route: 058
     Dates: start: 20110706
  12. MAGNESIUM [Concomitant]
     Active Substance: MAGNESIUM
  13. AMPYRA [Concomitant]
     Active Substance: DALFAMPRIDINE
  14. VITAMIN B12 [Concomitant]
     Active Substance: CYANOCOBALAMIN
  15. VITAMIN C [Concomitant]
     Active Substance: ASCORBIC ACID
  16. VITAMIN D [Concomitant]
     Active Substance: CHOLECALCIFEROL

REACTIONS (2)
  - Injection site reaction [Recovering/Resolving]
  - Wrong technique in product usage process [Unknown]

NARRATIVE: CASE EVENT DATE: 201611
